FAERS Safety Report 4916122-2 (Version None)
Quarter: 2006Q1

REPORT INFORMATION
  Report Type: 
  Country: None (occurrence: None)
  Receive Date: 20060113
  Receipt Date: 20051005
  Transmission Date: 20060701
  Serious: No
  Sender: FDA-Public Use
  Company Number: 2005SP003365

PATIENT
  Age: 75 Year
  Sex: Female
  Weight: 52.1637 kg

DRUGS (6)
  1. LUNESTA [Suspect]
     Indication: INSOMNIA
     Dosage: 2 MG, HS, ORAL
     Route: 048
     Dates: start: 20051001, end: 20051002
  2. SYNTHROID [Concomitant]
  3. XANAX [Concomitant]
  4. NEURONTIN [Concomitant]
  5. TIAZAC [Concomitant]
  6. SOMA [Concomitant]

REACTIONS (5)
  - DIZZINESS [None]
  - DRUG INEFFECTIVE [None]
  - FEELING ABNORMAL [None]
  - HALLUCINATION [None]
  - INITIAL INSOMNIA [None]
